FAERS Safety Report 20941527 (Version 2)
Quarter: 2022Q2

REPORT INFORMATION
  Report Type: Spontaneous
  Country: JP (occurrence: JP)
  Receive Date: 20220610
  Receipt Date: 20220616
  Transmission Date: 20220721
  Serious: Yes (Other)
  Sender: FDA-Public Use
  Company Number: JP-NOVARTISPH-NVSC2022JP131593

PATIENT
  Sex: Male

DRUGS (9)
  1. ETOPOSIDE [Suspect]
     Active Substance: ETOPOSIDE
     Indication: Neuroblastoma
     Dosage: UNK (ICE THERAPY)
     Route: 065
  2. ETOPOSIDE [Suspect]
     Active Substance: ETOPOSIDE
     Dosage: 100 MG/M2, CYCLIC (2-H INFUSION) (IREC THERAPY)
     Route: 041
  3. CARBOPLATIN [Suspect]
     Active Substance: CARBOPLATIN
     Indication: Neuroblastoma
     Route: 065
  4. CARBOPLATIN [Suspect]
     Active Substance: CARBOPLATIN
     Dosage: 80 MG/M2, CYCLIC
     Route: 041
  5. IRINOTECAN [Suspect]
     Active Substance: IRINOTECAN
     Indication: Neuroblastoma
     Dosage: 100 MG/M2, CYCLIC (2-H INFUSION) (IREC THERAPY)
     Route: 065
  6. IFOSFAMIDE [Concomitant]
     Active Substance: IFOSFAMIDE
     Indication: Neuroblastoma
     Dosage: UNK (ICE THERAPY)
     Route: 065
  7. SULFAMETHOXAZOLE\TRIMETHOPRIM [Concomitant]
     Active Substance: SULFAMETHOXAZOLE\TRIMETHOPRIM
     Indication: Infection prophylaxis
     Dosage: UNK
     Route: 048
  8. FLUCONAZOLE [Concomitant]
     Active Substance: FLUCONAZOLE
     Indication: Infection prophylaxis
     Dosage: UNK
     Route: 048
  9. CEFPODOXIME [Concomitant]
     Active Substance: CEFPODOXIME
     Indication: Prophylaxis against diarrhoea
     Dosage: UNK
     Route: 048

REACTIONS (4)
  - Neuroblastoma [Unknown]
  - Malignant neoplasm progression [Unknown]
  - Product use issue [Unknown]
  - Product use in unapproved indication [Unknown]
